FAERS Safety Report 8963799 (Version 2)
Quarter: 2013Q1

REPORT INFORMATION
  Report Type: Spontaneous
  Country: FR (occurrence: FR)
  Receive Date: 20121214
  Receipt Date: 20130108
  Transmission Date: 20140127
  Serious: Yes (Hospitalization)
  Sender: FDA-Public Use
  Company Number: FR-SANOFI-AVENTIS-2012SA088909

PATIENT
  Age: 59 Year
  Sex: Female

DRUGS (9)
  1. TAXOTERE [Suspect]
     Indication: BREAST CANCER
     Dosage: STOP DATE: 02-OCT-2012 OR 03-OCT-2012 (CYCLE 4)
     Route: 042
     Dates: start: 201208, end: 201210
  2. TRASTUZUMAB [Suspect]
     Indication: BREAST CANCER
     Dosage: STOP DATE: 02-OCT-2012 OR 03-OCT-2012 (CYCLE 4)
     Route: 042
     Dates: start: 201208, end: 201210
  3. ALPRAZOLAM [Concomitant]
     Route: 048
  4. CITALOPRAM [Concomitant]
     Indication: DEPRESSION
     Route: 048
  5. AMLOR [Concomitant]
     Indication: HYPERTENSION
     Route: 048
     Dates: start: 2010
  6. COUMADINE [Concomitant]
     Indication: HYPERTENSION
     Route: 048
     Dates: start: 201204
  7. PARIET [Concomitant]
     Route: 048
     Dates: start: 201204
  8. SPASFON [Concomitant]
     Indication: ABDOMINAL PAIN
  9. NEULASTA [Concomitant]
     Dosage: DOSE: 1 INJECTION?STRENGTH: 6MG
     Route: 058
     Dates: start: 201208

REACTIONS (1)
  - Mitral valve incompetence [Not Recovered/Not Resolved]
